FAERS Safety Report 8273631-9 (Version None)
Quarter: 2012Q2

REPORT INFORMATION
  Report Type: 
  Country: None (occurrence: None)
  Receive Date: 20120409
  Receipt Date: 20120409
  Transmission Date: 20120825
  Serious: No
  Sender: FDA-Public Use
  Company Number: None

PATIENT
  Age: 89 Year
  Sex: Male
  Weight: 56 kg

DRUGS (1)
  1. METOCLOPRAMIDE [Suspect]
     Indication: GASTROOESOPHAGEAL REFLUX DISEASE
     Dosage: 5 MG QID PO
     Route: 048
     Dates: start: 20111018, end: 20111119

REACTIONS (19)
  - DEMENTIA WITH LEWY BODIES [None]
  - GAIT DISTURBANCE [None]
  - FALL [None]
  - NEURODEGENERATIVE DISORDER [None]
  - MUSCULOSKELETAL STIFFNESS [None]
  - ABNORMAL DREAMS [None]
  - ANXIETY [None]
  - POSTURE ABNORMAL [None]
  - POST-TRAUMATIC STRESS DISORDER [None]
  - MULTIPLE SYSTEM ATROPHY [None]
  - RESTING TREMOR [None]
  - BALANCE DISORDER [None]
  - MEMORY IMPAIRMENT [None]
  - FREEZING PHENOMENON [None]
  - BRADYKINESIA [None]
  - MUSCLE RIGIDITY [None]
  - GAZE PALSY [None]
  - PARKINSON'S DISEASE [None]
  - PROGRESSIVE SUPRANUCLEAR PALSY [None]
